FAERS Safety Report 5928296-5 (Version None)
Quarter: 2008Q4

REPORT INFORMATION
  Report Type: 
  Country: None (occurrence: None)
  Receive Date: 20081022
  Receipt Date: 20081022
  Transmission Date: 20090506
  Serious: Yes (Life-Threatening, Hospitalization)
  Sender: FDA-Public Use
  Company Number: None

PATIENT
  Age: 69 Year
  Sex: Female

DRUGS (10)
  1. RITUXIMAB [Suspect]
     Indication: IDIOPATHIC THROMBOCYTOPENIC PURPURA
     Dosage: 4 INFUSIONS IV
     Route: 042
     Dates: start: 20030420, end: 20030519
  2. CEPHALEXIN [Concomitant]
  3. PREDNISONE TAB [Concomitant]
  4. AMG 531 [Concomitant]
  5. REMERON [Concomitant]
  6. ZOMETA [Concomitant]
  7. BLOOD TRANSFUSIONS [Concomitant]
  8. VENOGLOBULIN [Concomitant]
  9. PLAQUENIL [Concomitant]
  10. AZATHIOPRINE [Concomitant]

REACTIONS (12)
  - AMNESIA [None]
  - APATHY [None]
  - CONFUSIONAL STATE [None]
  - DECREASED APPETITE [None]
  - DEPRESSED MOOD [None]
  - FATIGUE [None]
  - HALLUCINATION, TACTILE [None]
  - HALLUCINATION, VISUAL [None]
  - MENTAL STATUS CHANGES [None]
  - PROGRESSIVE MULTIFOCAL LEUKOENCEPHALOPATHY [None]
  - SOCIAL AVOIDANT BEHAVIOUR [None]
  - SOMNOLENCE [None]
